FAERS Safety Report 20554200 (Version 7)
Quarter: 2022Q3

REPORT INFORMATION
  Report Type: Spontaneous
  Country: IT (occurrence: IT)
  Receive Date: 20220304
  Receipt Date: 20220711
  Transmission Date: 20221026
  Serious: Yes (Other)
  Sender: FDA-Public Use
  Company Number: IT-NOVARTISPH-NVSC2022IT050760

PATIENT
  Age: 43 Year
  Sex: Male

DRUGS (8)
  1. RASAGILINE [Suspect]
     Active Substance: RASAGILINE
     Indication: Parkinson^s disease
     Dosage: 1 MG, QD
     Route: 048
  2. PRAMIPEXOLE [Concomitant]
     Active Substance: PRAMIPEXOLE
     Indication: Parkinson^s disease
     Dosage: 1.05 MG DAILY
     Route: 048
  3. CARBIDOPA\LEVODOPA [Concomitant]
     Active Substance: CARBIDOPA\LEVODOPA
     Indication: Parkinson^s disease
     Dosage: 300MG (100/25MG 3 IN 1 D) (THREE TIMES PER DAY)
     Route: 065
  4. CARBIDOPA\LEVODOPA [Concomitant]
     Active Substance: CARBIDOPA\LEVODOPA
     Dosage: 500 MG (100/25MG 5 IN 1 D) (FIVE TIMES PER DAY)
     Route: 065
  5. CARBIDOPA\LEVODOPA [Concomitant]
     Active Substance: CARBIDOPA\LEVODOPA
     Dosage: 9 DOSAGES 100 MG DAILY
     Route: 065
  6. CARBIDOPA W/MELEVODOPA [Concomitant]
     Indication: Parkinson^s disease
     Dosage: UNK, BID (100/25 TWO TIMES PER DAY)
     Route: 065
  7. MELEVODOPA [Concomitant]
     Active Substance: MELEVODOPA
     Indication: Parkinson^s disease
     Dosage: UNK, BID (TWO TIMES PER DAY)
     Route: 065
  8. MELEVODOPA [Concomitant]
     Active Substance: MELEVODOPA
     Dosage: 200 MG, QD, 2 DOSAGES 100 MG DAILY
     Route: 065

REACTIONS (12)
  - Dysphoria [Recovered/Resolved]
  - Fatigue [Recovered/Resolved]
  - Pain [Recovered/Resolved]
  - Aggression [Recovered/Resolved]
  - Anxiety [Recovered/Resolved]
  - Muscle rigidity [Recovered/Resolved]
  - Agitation [Recovered/Resolved]
  - Drug withdrawal syndrome [Recovered/Resolved]
  - Depression [Recovered/Resolved]
  - Insomnia [Recovered/Resolved]
  - On and off phenomenon [Recovering/Resolving]
  - Rapid eye movement sleep behaviour disorder [Recovered/Resolved]
